FAERS Safety Report 5077280-5 (Version None)
Quarter: 2006Q3

REPORT INFORMATION
  Report Type: 
  Country: None (occurrence: None)
  Receive Date: 20060810
  Receipt Date: 20060117
  Transmission Date: 20061208
  Serious: No
  Sender: FDA-Public Use
  Company Number: US-GLAXOSMITHKLINE-A0589658A

PATIENT
  Age: 64 Year
  Sex: Female

DRUGS (11)
  1. PAXIL [Suspect]
     Dosage: 25MG PER DAY
     Route: 048
     Dates: start: 20051101, end: 20060101
  2. ARIMIDEX [Concomitant]
  3. SYNTHROID [Concomitant]
  4. REQUIP [Concomitant]
  5. AQUANIL [Concomitant]
  6. TRAZODONE HCL [Concomitant]
  7. ARTHROTEC [Concomitant]
  8. GLUCOSAMINE [Concomitant]
  9. CHONDROITIN [Concomitant]
  10. MULTI-VITAMIN [Concomitant]
  11. CALCIUM D [Concomitant]

REACTIONS (2)
  - DIARRHOEA [None]
  - DYSPEPSIA [None]
